FAERS Safety Report 5608071-1 (Version None)
Quarter: 2008Q1

REPORT INFORMATION
  Report Type: 
  Country: None (occurrence: None)
  Receive Date: 20080125
  Receipt Date: 20080125
  Transmission Date: 20080703
  Serious: Yes (Life-Threatening, Hospitalization, Other)
  Sender: FDA-Public Use
  Company Number: None

PATIENT
  Age: 57 Year
  Sex: Female
  Weight: 68.0396 kg

DRUGS (1)
  1. MUCINEX DM [Suspect]
     Indication: COUGH
     Dosage: 1-2 TABLETS EVERY 12 HRS PO
     Route: 048
     Dates: start: 20080120, end: 20080121

REACTIONS (6)
  - BURNING SENSATION [None]
  - DIZZINESS [None]
  - DRUG INEFFECTIVE [None]
  - DYSARTHRIA [None]
  - THERAPY REGIMEN CHANGED [None]
  - TREMOR [None]
